FAERS Safety Report 8979774 (Version 2)
Quarter: 2013Q1

REPORT INFORMATION
  Report Type: Spontaneous
  Country: FR (occurrence: FR)
  Receive Date: 20121221
  Receipt Date: 20130115
  Transmission Date: 20140127
  Serious: Yes (Death, Hospitalization)
  Sender: FDA-Public Use
  Company Number: PHHY2012FR117262

PATIENT
  Age: 82 Year
  Sex: Female

DRUGS (8)
  1. AFINITOR [Suspect]
     Dosage: 10 MG, QD
     Route: 048
     Dates: start: 20120927, end: 20121105
  2. TAREG [Suspect]
     Dosage: 40 MG, QD
     Dates: start: 20120213, end: 20121105
  3. AROMASINE [Suspect]
     Dosage: 25 MG, QD
     Route: 048
     Dates: start: 20120927, end: 20121105
  4. DEBRIDAT [Suspect]
     Dosage: UNK, TID
     Route: 048
     Dates: start: 201112, end: 20121105
  5. LOVENOX [Suspect]
     Dosage: UNK
     Route: 058
     Dates: start: 201110, end: 20121105
  6. LASILIX [Suspect]
     Dosage: 20 MG, QD
     Route: 048
     Dates: start: 201110, end: 20121103
  7. SKENAN [Concomitant]
  8. CALCIPARINE [Concomitant]

REACTIONS (7)
  - Renal failure acute [Fatal]
  - Fall [Unknown]
  - Dehydration [Unknown]
  - Acidosis [Unknown]
  - Blood bicarbonate decreased [Unknown]
  - Hypokalaemia [Unknown]
  - Neoplasm progression [Unknown]
